FAERS Safety Report 4822075-8 (Version None)
Quarter: 2005Q4

REPORT INFORMATION
  Report Type: 
  Country: None (occurrence: None)
  Receive Date: 20051103
  Receipt Date: 20051024
  Transmission Date: 20060501
  Serious: Yes (Other)
  Sender: FDA-Public Use
  Company Number: 2005-0008782

PATIENT
  Age: 68 Year
  Sex: Male

DRUGS (9)
  1. HEPSERA [Suspect]
     Indication: HEPATITIS B
     Dosage: 10 MG, 1 IN 1 D, ORAL
     Route: 048
     Dates: start: 20040114, end: 20050802
  2. HEPSERA [Suspect]
     Indication: HEPATITIS B
     Dosage: 10 MG, 1 IN 1 D, ORAL
     Route: 048
     Dates: start: 20050803, end: 20050909
  3. HEPSERA [Suspect]
     Indication: HEPATITIS B
     Dosage: 10 MG, 1 IN 1 D, ORAL
     Route: 048
     Dates: start: 20050910
  4. ZEFFIX (LAMIVUDINE) [Concomitant]
  5. FLUITRAN (TRICHLORMETHIAZIDE) [Concomitant]
  6. AMOBAN (ZOPICLONE) [Concomitant]
  7. ZOLPIDEM TARTRATE [Concomitant]
  8. FAMOTIDINE [Concomitant]
  9. MUCOSTA (REBAMIPIDE) [Concomitant]

REACTIONS (1)
  - GLOMERULONEPHRITIS MEMBRANOPROLIFERATIVE [None]
